APPROVED DRUG PRODUCT: FUNGIZONE
Active Ingredient: AMPHOTERICIN B
Strength: 100MG/ML
Dosage Form/Route: SUSPENSION;ORAL
Application: N050341 | Product #003
Applicant: BRISTOL MYERS SQUIBB CO
Approved: Approved Prior to Jan 1, 1982 | RLD: No | RS: No | Type: DISCN